FAERS Safety Report 7320505-3 (Version None)
Quarter: 2011Q1

REPORT INFORMATION
  Report Type: 
  Country: None (occurrence: None)
  Receive Date: 20110228
  Receipt Date: 20110223
  Transmission Date: 20110831
  Serious: Yes (Hospitalization)
  Sender: FDA-Public Use
  Company Number: AT-BRISTOL-MYERS SQUIBB COMPANY-15567506

PATIENT
  Age: 70 Year
  Sex: Female

DRUGS (10)
  1. XANOR [Concomitant]
  2. NORVASC [Concomitant]
  3. TRITTICO [Concomitant]
  4. MADOPAR [Concomitant]
  5. UNASYN [Concomitant]
  6. BUSPIRONE HCL TABS [Suspect]
     Dosage: 1 DF = 30 TABS
     Dates: start: 20101001
  7. LAMICTAL [Concomitant]
  8. IXEL [Concomitant]
  9. AZILECT [Concomitant]
  10. TRESLEEN [Concomitant]

REACTIONS (9)
  - SOMNOLENCE [None]
  - SUICIDE ATTEMPT [None]
  - HYPOKALAEMIA [None]
  - ALTERED STATE OF CONSCIOUSNESS [None]
  - INTENTIONAL OVERDOSE [None]
  - NAUSEA [None]
  - HEADACHE [None]
  - COMA [None]
  - HYPERTHERMIA [None]
